FAERS Safety Report 8328720-7 (Version None)
Quarter: 2012Q2

REPORT INFORMATION
  Report Type: 
  Country: None (occurrence: None)
  Receive Date: 20120502
  Receipt Date: 20100823
  Transmission Date: 20120825
  Serious: No
  Sender: FDA-Public Use
  Company Number: US-TEVA-2010004500

PATIENT
  Sex: Female
  Weight: 78.088 kg

DRUGS (6)
  1. TOPAMAX [Concomitant]
     Dates: start: 20091001
  2. NEXIUM [Concomitant]
     Dates: start: 20100809
  3. VENTOLIN [Concomitant]
     Dates: start: 19790101
  4. KLONOPIN [Concomitant]
     Dates: start: 20030101
  5. NUVIGIL [Suspect]
     Indication: SOMNOLENCE
     Dosage: 250 MILLIGRAM;
     Route: 048
     Dates: start: 20100601
  6. ABILIFY [Concomitant]
     Dates: start: 20060101

REACTIONS (1)
  - DRUG TOLERANCE [None]
